FAERS Safety Report 7371951-3 (Version None)
Quarter: 2011Q1

REPORT INFORMATION
  Report Type: 
  Country: None (occurrence: None)
  Receive Date: 20110322
  Receipt Date: 20110322
  Transmission Date: 20110831
  Serious: Yes (Hospitalization)
  Sender: FDA-Public Use
  Company Number: None

PATIENT
  Age: 48 Year
  Sex: Male
  Weight: 75 kg

DRUGS (2)
  1. LISINOPRIL AND HYDROCHLOROTHIAZIDE [Suspect]
     Indication: HYPERTENSION
     Dosage: 1 TAB EVERY DAY PO
     Route: 048
     Dates: start: 20090306, end: 20110209
  2. IBUPROFEN [Suspect]
     Indication: PAIN
     Dosage: 800 MG QID PO
     Route: 048
     Dates: start: 20110126, end: 20110208

REACTIONS (3)
  - DROOLING [None]
  - THROAT IRRITATION [None]
  - ANGIOEDEMA [None]
